FAERS Safety Report 5739586-3 (Version None)
Quarter: 2008Q2

REPORT INFORMATION
  Report Type: 
  Country: None (occurrence: None)
  Receive Date: 20080515
  Receipt Date: 20080506
  Transmission Date: 20081010
  Serious: Yes (Hospitalization)
  Sender: FDA-Public Use
  Company Number: US-AMGEN-STX277900

PATIENT
  Sex: Female

DRUGS (1)
  1. ENBREL [Suspect]
     Indication: RHEUMATOID ARTHRITIS
     Route: 058
     Dates: start: 20070101, end: 20071001

REACTIONS (5)
  - ASTHENIA [None]
  - DECUBITUS ULCER [None]
  - INCREASED UPPER AIRWAY SECRETION [None]
  - PNEUMONIA ASPIRATION [None]
  - RHEUMATOID ARTHRITIS [None]
